FAERS Safety Report 6851820-5 (Version None)
Quarter: 2010Q3

REPORT INFORMATION
  Report Type: 
  Country: None (occurrence: None)
  Receive Date: 20100717
  Receipt Date: 20071101
  Transmission Date: 20110219
  Serious: No
  Sender: FDA-Public Use
  Company Number: US-PFIZER INC-2007092507

PATIENT
  Sex: Female
  Weight: 65.8 kg

DRUGS (11)
  1. CHANTIX [Suspect]
     Indication: SMOKING CESSATION THERAPY
     Dates: start: 20071022
  2. OMEPRAZOLE [Concomitant]
  3. BISOPROLOL [Concomitant]
  4. BENICAR [Concomitant]
  5. WELLBUTRIN [Concomitant]
  6. PREMPRO [Concomitant]
  7. NORTRIPTYLINE [Concomitant]
  8. CRESTOR [Concomitant]
  9. ACETYLSALICYLIC ACID [Concomitant]
  10. ALL OTHER THERAPEUTIC PRODUCTS [Concomitant]
     Indication: OSTEOPOROSIS
  11. PAROXETINE [Concomitant]

REACTIONS (2)
  - DYSGEUSIA [None]
  - URINE ODOUR ABNORMAL [None]
